FAERS Safety Report 13670493 (Version 2)
Quarter: 2017Q2

REPORT INFORMATION
  Report Type: Spontaneous
  Country: SE (occurrence: SE)
  Receive Date: 20170620
  Receipt Date: 20170626
  Transmission Date: 20170830
  Serious: Yes (Other)
  Sender: FDA-Public Use
  Company Number: SE-TEVA-777890ISR

PATIENT
  Age: 40 Year
  Sex: Male

DRUGS (1)
  1. OMEPRAZOL TEVA [Suspect]
     Active Substance: OMEPRAZOLE
     Indication: GASTROINTESTINAL DISORDER
     Dosage: 20 MILLIGRAM DAILY;
     Route: 065

REACTIONS (3)
  - Pruritus [Unknown]
  - Skin burning sensation [Unknown]
  - Cardiac fibrillation [Unknown]
